FAERS Safety Report 5472254-4 (Version None)
Quarter: 2007Q3

REPORT INFORMATION
  Report Type: 
  Country: None (occurrence: None)
  Receive Date: 20070927
  Receipt Date: 20070921
  Transmission Date: 20080115
  Serious: Yes (Death, Hospitalization)
  Sender: FDA-Public Use
  Company Number: 163-21880-07070167

PATIENT
  Age: 73 Year
  Sex: Male
  Weight: 79 kg

DRUGS (5)
  1. REVLIMID [Suspect]
     Indication: ACUTE MYELOID LEUKAEMIA
     Dosage: 50 MG, DAILY X14 DAYS, ORAL
     Route: 048
     Dates: start: 20070619, end: 20070702
  2. HYDROXYUREA [Concomitant]
  3. ALLOPURINOL [Concomitant]
  4. CIPROFLOXACIN [Concomitant]
  5. VALTREX [Concomitant]

REACTIONS (9)
  - AORTIC CALCIFICATION [None]
  - CALCINOSIS [None]
  - CENTRAL NERVOUS SYSTEM LEUKAEMIA [None]
  - MENINGISM [None]
  - PLATELET COUNT DECREASED [None]
  - PULMONARY GRANULOMA [None]
  - SEPSIS [None]
  - SOMNOLENCE [None]
  - WHITE BLOOD CELL COUNT INCREASED [None]
